FAERS Safety Report 8584689-1 (Version None)
Quarter: 2012Q3

REPORT INFORMATION
  Report Type: 
  Country: None (occurrence: None)
  Receive Date: 20120810
  Receipt Date: 20120802
  Transmission Date: 20120928
  Serious: Yes (Hospitalization)
  Sender: FDA-Public Use
  Company Number: US-CELGENEUS-163-21880-12080444

PATIENT
  Sex: Male
  Weight: 99.88 kg

DRUGS (11)
  1. FOLIC ACID [Concomitant]
     Route: 065
  2. REVLIMID [Suspect]
     Indication: MULTIPLE MYELOMA
     Dosage: 5 MILLIGRAM
     Route: 048
     Dates: start: 20111118
  3. VERAPAMIL [Concomitant]
     Route: 065
  4. VITAMIN D [Concomitant]
     Route: 065
  5. COUMADIN [Concomitant]
     Route: 065
  6. JANUMET [Concomitant]
     Route: 065
  7. METOPROLOL TARTRATE [Concomitant]
     Route: 065
  8. SAVELLA [Concomitant]
     Route: 065
  9. LISINOPRIL [Concomitant]
     Route: 065
  10. PRILOSEC [Concomitant]
     Route: 065
  11. MAGNESIUM [Concomitant]
     Route: 065

REACTIONS (5)
  - HYPERSOMNIA [None]
  - ASTHENIA [None]
  - RIB FRACTURE [None]
  - GAIT DISTURBANCE [None]
  - FALL [None]
